FAERS Safety Report 8852222 (Version 1)
Quarter: 2012Q4

REPORT INFORMATION
  Report Type: 
  Country: US (occurrence: US)
  Receive Date: 20121022
  Receipt Date: 20121022
  Transmission Date: 20130627
  Serious: No
  Sender: FDA-Public Use
  Company Number: US-009507513-1207USA012213

PATIENT
  Age: 46 Year
  Sex: Male

DRUGS (7)
  1. PROVENTIL [Suspect]
  2. SYMBICORT [Suspect]
     Dosage: UNK, bid
  3. KLONOPIN [Concomitant]
  4. XANAX [Concomitant]
  5. ADVIL [Concomitant]
     Dosage: UNK, bid
  6. ACETYLCYSTEINE [Concomitant]
  7. VENTOLIN (ALBUTEROL SULFATE) [Concomitant]

REACTIONS (5)
  - Dyspnoea [Unknown]
  - Asthma [Unknown]
  - Malaise [Unknown]
  - Chest discomfort [Unknown]
  - Insomnia [Unknown]
